FAERS Safety Report 6972460-3 (Version None)
Quarter: 2010Q3

REPORT INFORMATION
  Report Type: 
  Country: None (occurrence: None)
  Receive Date: 20100909
  Receipt Date: 20100901
  Transmission Date: 20110219
  Serious: Yes (Hospitalization, Other)
  Sender: FDA-Public Use
  Company Number: US-ELI_LILLY_AND_COMPANY-US201009000689

PATIENT
  Sex: Female

DRUGS (16)
  1. HUMULIN R [Suspect]
     Indication: DIABETES MELLITUS
     Dosage: UNK, AS NEEDED
  2. HUMULIN R [Suspect]
     Dosage: UNK, AS NEEDED
  3. HUMULIN R [Suspect]
     Dosage: 19 U, UNK
     Dates: start: 20100831
  4. TRAMADOL HCL [Concomitant]
  5. ATIVAN [Concomitant]
  6. LASIX [Concomitant]
  7. POTASSIUM [Concomitant]
  8. ONE A DAY                          /02262701/ [Concomitant]
  9. CARVEDILOL [Concomitant]
  10. PLAVIX [Concomitant]
  11. DIOVAN [Concomitant]
  12. ASPIRIN [Concomitant]
  13. CLARITIN [Concomitant]
  14. SIMVASTATIN [Concomitant]
  15. OMEPRAZOLE [Concomitant]
  16. LANTUS [Concomitant]

REACTIONS (14)
  - ASTHENIA [None]
  - BLOOD GLUCOSE DECREASED [None]
  - BLOOD GLUCOSE INCREASED [None]
  - CATARACT [None]
  - DIARRHOEA [None]
  - DIZZINESS [None]
  - DRUG INEFFECTIVE [None]
  - FEELING ABNORMAL [None]
  - MALAISE [None]
  - MOBILITY DECREASED [None]
  - MYOCARDIAL INFARCTION [None]
  - PERIPHERAL VASCULAR DISORDER [None]
  - STENT PLACEMENT [None]
  - VISUAL IMPAIRMENT [None]
